FAERS Safety Report 23677817 (Version 3)
Quarter: 2024Q2

REPORT INFORMATION
  Report Type: Spontaneous
  Country: FR (occurrence: FR)
  Receive Date: 20240327
  Receipt Date: 20240614
  Transmission Date: 20240716
  Serious: Yes (Hospitalization)
  Sender: FDA-Public Use
  Company Number: None

PATIENT
  Age: 80 Year
  Sex: Male
  Weight: 94 kg

DRUGS (15)
  1. FUROSEMIDE [Suspect]
     Active Substance: FUROSEMIDE
     Indication: Hypertension
     Dosage: 40 MG PER DAY
     Route: 048
  2. CHOLECALCIFEROL [Concomitant]
     Active Substance: CHOLECALCIFEROL
     Indication: Product used for unknown indication
     Route: 065
  3. POTASSIUM CHLORIDE [Concomitant]
     Active Substance: POTASSIUM CHLORIDE
     Indication: Product used for unknown indication
     Route: 065
  4. AMOXICILLIN [Suspect]
     Active Substance: AMOXICILLIN
     Indication: Pneumonia bacterial
     Dosage: 1 SACHET MORNING, NOON AND EVENING
     Route: 048
     Dates: start: 20230913, end: 20230915
  5. AMOXICILLIN [Suspect]
     Active Substance: AMOXICILLIN
     Indication: Pneumonia bacterial
     Dosage: 1 SACHET MORNING, NOON AND EVENING
     Route: 048
     Dates: start: 20230901, end: 20230906
  6. CLAVULANIC ACID [Suspect]
     Active Substance: CLAVULANIC ACID
     Indication: Pneumonia bacterial
     Dosage: 1 SACHET OF 125 MG MORNING, NOON AND EVENING
     Route: 048
     Dates: start: 20230901, end: 20230906
  7. CLAVULANIC ACID [Suspect]
     Active Substance: CLAVULANIC ACID
     Indication: Pneumonia bacterial
     Dosage: 1 SACHET OF 125 MG MORNING, NOON AND EVENING
     Route: 048
     Dates: start: 20230913, end: 20230915
  8. TRANSIPEG [Concomitant]
     Indication: Product used for unknown indication
     Route: 065
  9. ALFUZOSIN [Suspect]
     Active Substance: ALFUZOSIN
     Indication: Benign prostatic hyperplasia
     Dosage: ALFUZOSIN (HYDROCHLORIDE), 1 TABLET PER DAY
     Route: 048
  10. AMOXICILLIN\CLAVULANIC ACID [Suspect]
     Active Substance: AMOXICILLIN\CLAVULANIC ACID
     Indication: Pneumonia bacterial
     Dosage: 1 G/200 MG MORNING, NOON AND EVENING ,AMOXICILLINE ACIDE CLAVULANIQUE  SANDOZ
     Route: 042
     Dates: start: 20230909, end: 20230913
  11. PAROXETINE [Suspect]
     Active Substance: PAROXETINE
     Indication: Depression
     Dosage: PAROXETINE (ANHYDROUS HYDROCHLORIDE), 1 MG PER DAY
     Route: 048
  12. ROSUVASTATIN [Suspect]
     Active Substance: ROSUVASTATIN
     Indication: Dyslipidaemia
     Dosage: 5 MG PER DAY
     Route: 048
     Dates: end: 20240302
  13. FLUINDIONE [Suspect]
     Active Substance: FLUINDIONE
     Indication: Atrial fibrillation
     Dosage: 15 MG PER DAY, SCORED TABLET
     Route: 048
  14. LANSOPRAZOLE [Suspect]
     Active Substance: LANSOPRAZOLE
     Indication: Gastrooesophageal reflux disease
     Dosage: 15 MG PER DAY
     Route: 048
     Dates: start: 20230908
  15. LANSOPRAZOLE [Suspect]
     Active Substance: LANSOPRAZOLE
     Indication: Gastrooesophageal reflux disease
     Dosage: 30 MG PER DAY
     Route: 048
     Dates: end: 20230908

REACTIONS (3)
  - Hepatic cytolysis [Recovered/Resolved]
  - Cholestasis [Recovered/Resolved]
  - Blood bilirubin increased [Recovered/Resolved]

NARRATIVE: CASE EVENT DATE: 20230906
